FAERS Safety Report 16043186 (Version 5)
Quarter: 2019Q2

REPORT INFORMATION
  Report Type: Report from Study
  Country: ES (occurrence: ES)
  Receive Date: 20190306
  Receipt Date: 20190604
  Transmission Date: 20190711
  Serious: Yes (Hospitalization)
  Sender: FDA-Public Use
  Company Number: ES-JNJFOC-20190239200

PATIENT
  Age: 42 Year
  Sex: Female
  Weight: 58.5 kg

DRUGS (4)
  1. SIMPONI [Suspect]
     Active Substance: GOLIMUMAB
     Indication: COLITIS ULCERATIVE
     Route: 058
     Dates: start: 20180705
  2. TACROLIMUS. [Concomitant]
     Active Substance: TACROLIMUS
     Indication: COLITIS ULCERATIVE
     Route: 054
     Dates: start: 20180627
  3. SULFAMETOXAZOL [Concomitant]
     Active Substance: SULFAMETHOXAZOLE
     Indication: PNEUMONIA
     Route: 065
     Dates: start: 20190116, end: 20190226
  4. MESALAZINA [Concomitant]
     Active Substance: MESALAMINE
     Indication: COLITIS ULCERATIVE
     Route: 048
     Dates: start: 20180627

REACTIONS (2)
  - Tuberculosis [Not Recovered/Not Resolved]
  - Atypical pneumonia [Recovered/Resolved with Sequelae]

NARRATIVE: CASE EVENT DATE: 20190215
